FAERS Safety Report 9731189 (Version 1)
Quarter: 2013Q4

REPORT INFORMATION
  Report Type: Spontaneous
  Country: AU (occurrence: AU)
  Receive Date: 20131205
  Receipt Date: 20131205
  Transmission Date: 20140711
  Serious: Yes (Hospitalization)
  Sender: FDA-Public Use
  Company Number: AU-BRISTOL-MYERS SQUIBB COMPANY-19863307

PATIENT
  Sex: Female

DRUGS (1)
  1. ELIQUIS [Suspect]
     Dates: start: 20131122

REACTIONS (1)
  - Cerebrovascular accident [Unknown]
